FAERS Safety Report 21811456 (Version 6)
Quarter: 2025Q2

REPORT INFORMATION
  Report Type: Spontaneous
  Country: BE (occurrence: BE)
  Receive Date: 20230103
  Receipt Date: 20250526
  Transmission Date: 20250716
  Serious: Yes (Other)
  Sender: TAKEDA
  Company Number: BE-TAKEDA-2017TUS006649

PATIENT
  Sex: Male
  Weight: 93 kg

DRUGS (1)
  1. ENTYVIO [Suspect]
     Active Substance: VEDOLIZUMAB
     Indication: Crohn^s disease

REACTIONS (2)
  - Anastomotic ulcer [Unknown]
  - Therapeutic reaction time decreased [Unknown]
